FAERS Safety Report 13428150 (Version 1)
Quarter: 2017Q2

REPORT INFORMATION
  Report Type: Report from Study
  Country: US (occurrence: US)
  Receive Date: 20170411
  Receipt Date: 20170411
  Transmission Date: 20170830
  Serious: Yes (Hospitalization)
  Sender: FDA-Public Use
  Company Number: US-ACTELION-A-NJ2017-152235

PATIENT
  Age: 51 Year
  Sex: Male

DRUGS (2)
  1. ADCIRCA [Concomitant]
     Active Substance: TADALAFIL
  2. OPSUMIT [Suspect]
     Active Substance: MACITENTAN
     Indication: PULMONARY HYPERTENSION
     Dosage: 10 MG, UNK
     Route: 048

REACTIONS (8)
  - Sinusitis [Unknown]
  - Palpitations [Unknown]
  - Weight increased [Unknown]
  - Eye pain [Unknown]
  - Unevaluable investigation [Unknown]
  - Fluid retention [Unknown]
  - Renal impairment [Unknown]
  - Sinus congestion [Unknown]
